FAERS Safety Report 10144280 (Version 1)
Quarter: 2014Q2

REPORT INFORMATION
  Report Type: Spontaneous
  Country: DE (occurrence: DE)
  Receive Date: 20140430
  Receipt Date: 20140430
  Transmission Date: 20141212
  Serious: Yes (Other)
  Sender: FDA-Public Use
  Company Number: DE-WATSON-2014-08509

PATIENT
  Age: 66 Year
  Sex: Female
  Weight: 87 kg

DRUGS (3)
  1. CEFUROXIME SODIUM (UNKNOWN) [Suspect]
     Indication: BRONCHITIS
     Dosage: 500 MG, UNK
     Route: 048
     Dates: start: 20140302, end: 20140403
  2. PANTOPRAZOL [Concomitant]
     Indication: PRODUCT USED FOR UNKNOWN INDICATION
     Dosage: 40 MG, DAILY
     Route: 048
     Dates: start: 20140214
  3. FSME-IMMUN [Concomitant]
     Indication: IMMUNISATION
     Dosage: 1 DF, UNK
     Route: 030
     Dates: start: 20140305, end: 20140305

REACTIONS (3)
  - Neurologic neglect syndrome [Recovered/Resolved]
  - Monoparesis [Recovered/Resolved]
  - Speech disorder [Recovered/Resolved]
